FAERS Safety Report 9274591 (Version 1)
Quarter: 2013Q2

REPORT INFORMATION
  Report Type: Report from Study
  Country: HU (occurrence: HU)
  Receive Date: 20130507
  Receipt Date: 20130507
  Transmission Date: 20140414
  Serious: Yes (Other)
  Sender: FDA-Public Use
  Company Number: HU-ROCHE-1219615

PATIENT
  Age: 51 Year
  Sex: Female

DRUGS (3)
  1. BEVACIZUMAB [Suspect]
     Indication: LUNG ADENOCARCINOMA
     Route: 065
     Dates: start: 20090129
  2. CISPLATIN [Suspect]
     Indication: LUNG ADENOCARCINOMA
     Route: 065
     Dates: start: 20081120, end: 20090326
  3. GEMZAR [Suspect]
     Indication: LUNG ADENOCARCINOMA
     Route: 065
     Dates: start: 20081120, end: 20090326

REACTIONS (15)
  - Hyperkalaemia [Unknown]
  - Hypertonia [Unknown]
  - Spinal pain [Unknown]
  - Hypercholesterolaemia [Unknown]
  - Hypertriglyceridaemia [Unknown]
  - Cholelithiasis [Unknown]
  - Renal failure [Unknown]
  - Renal cyst [Unknown]
  - Hyperuricaemia [Unknown]
  - Bone pain [Unknown]
  - Nephrolithiasis [Unknown]
  - Rectal ulcer [Unknown]
  - Blood glucose increased [Unknown]
  - Lower respiratory tract infection [Unknown]
  - Neutropenia [Unknown]
